FAERS Safety Report 5085613-9 (Version None)
Quarter: 2006Q3

REPORT INFORMATION
  Report Type: 
  Country: None (occurrence: None)
  Receive Date: 20060822
  Receipt Date: 20060818
  Transmission Date: 20061208
  Serious: Yes (Other)
  Sender: FDA-Public Use
  Company Number: AU-GLAXOSMITHKLINE-B0434894A

PATIENT
  Age: 52 Year
  Sex: Male

DRUGS (1)
  1. ZYBAN [Suspect]
     Indication: SMOKING CESSATION THERAPY
     Route: 065

REACTIONS (4)
  - AGGRESSION [None]
  - MOOD ALTERED [None]
  - SLUGGISHNESS [None]
  - SMOKER [None]
